FAERS Safety Report 9269989 (Version 2)
Quarter: 2013Q2

REPORT INFORMATION
  Report Type: Report from Study
  Country: IL (occurrence: IL)
  Receive Date: 20130503
  Receipt Date: 20130503
  Transmission Date: 20140414
  Serious: Yes (Death, Hospitalization)
  Sender: FDA-Public Use
  Company Number: IL-B.I. PHARMACEUTICALS,INC./RIDGEFIELD-2011-DE-01810DE

PATIENT
  Age: 44 Year
  Sex: Male
  Weight: 68.3 kg

DRUGS (6)
  1. BIBW 2992 (AFATINIB) [Suspect]
     Indication: NON-SMALL CELL LUNG CANCER
     Dosage: 50 MG
     Route: 048
     Dates: start: 20110307, end: 20110310
  2. NORMALOL [Concomitant]
     Indication: HYPERTENSION
     Dosage: 100 MG
     Route: 048
     Dates: start: 20110201
  3. IKACOR [Concomitant]
     Indication: TACHYCARDIA
     Dosage: 40 MG
     Route: 048
     Dates: start: 20110201
  4. CLEXANE [Concomitant]
     Indication: PULMONARY EMBOLISM
     Dosage: 80 MG
     Route: 058
     Dates: start: 20110103
  5. BLOOD DONATION DRC [Concomitant]
     Indication: ANAEMIA
     Route: 042
     Dates: start: 20110329, end: 20110329
  6. SUPPLEMENTAL OXYGEN [Concomitant]
     Indication: DYSPNOEA
     Dosage: FORMULATION: GAS; STRENGTH AND DAILY DOSE: PRN
     Route: 045
     Dates: start: 20110313, end: 20110330

REACTIONS (4)
  - Malignant neoplasm progression [Fatal]
  - Dyspnoea [Recovered/Resolved]
  - Peritoneal haemorrhage [Recovered/Resolved]
  - Anaemia [Recovered/Resolved]
